FAERS Safety Report 5141670-2 (Version None)
Quarter: 2006Q4

REPORT INFORMATION
  Report Type: 
  Country: None (occurrence: None)
  Receive Date: 20061026
  Receipt Date: 20061013
  Transmission Date: 20070319
  Serious: Yes (Death, Other)
  Sender: FDA-Public Use
  Company Number: 2006S1000225

PATIENT
  Age: 47 Year
  Sex: Male

DRUGS (4)
  1. CUBICIN [Suspect]
     Indication: STAPHYLOCOCCAL BACTERAEMIA
     Dosage: 4 MG/KG; Q48H;
     Dates: start: 20050101, end: 20060101
  2. VANCOMYCIN [Concomitant]
  3. LINEZOLID [Concomitant]
  4. ANTICOAGULANTS [Concomitant]

REACTIONS (10)
  - BACTERIAL INFECTION [None]
  - CULTURE WOUND POSITIVE [None]
  - DIALYSIS [None]
  - DISEASE RECURRENCE [None]
  - HYPOTENSION [None]
  - INTESTINAL PERFORATION [None]
  - PLATELET COUNT DECREASED [None]
  - PYREXIA [None]
  - STAPHYLOCOCCAL BACTERAEMIA [None]
  - THROMBOPHLEBITIS SEPTIC [None]
